FAERS Safety Report 13638929 (Version 1)
Quarter: 2017Q2

REPORT INFORMATION
  Report Type: Spontaneous
  Country: TR (occurrence: TR)
  Receive Date: 20170609
  Receipt Date: 20170609
  Transmission Date: 20170830
  Serious: Yes (Other)
  Sender: FDA-Public Use
  Company Number: TR-ABBVIE-17P-161-2002272-00

PATIENT
  Age: 41 Year
  Sex: Female

DRUGS (1)
  1. DEPAKINE CHRONO [Suspect]
     Active Substance: VALPROATE SODIUM
     Indication: BIPOLAR DISORDER
     Route: 055
     Dates: start: 20170404, end: 20170523

REACTIONS (7)
  - Vomiting [Unknown]
  - Tremor [Unknown]
  - Incorrect route of drug administration [Unknown]
  - Diarrhoea [Unknown]
  - Asthenia [Unknown]
  - Speech disorder [Unknown]
  - Nausea [Unknown]

NARRATIVE: CASE EVENT DATE: 20170404
